FAERS Safety Report 8888115 (Version 1)
Quarter: 2012Q4

REPORT INFORMATION
  Report Type: 
  Country: US (occurrence: US)
  Receive Date: 20121106
  Receipt Date: 20121106
  Transmission Date: 20130627
  Serious: Yes (Other)
  Sender: FDA-Public Use
  Company Number: US-BAYER-2012-113636

PATIENT
  Age: 60 Year
  Sex: Female

DRUGS (11)
  1. BETASERON [Suspect]
     Dosage: 0.25 mg, QOD
     Route: 058
  2. VITAMIN D NOS [Concomitant]
     Dosage: 1000 UNK, UNK
  3. BACLOFEN [Concomitant]
     Dosage: 10 mg, UNK
  4. MULTIVITAMIN [Concomitant]
  5. DIAZEPAM [Concomitant]
  6. SERTRALINE [Concomitant]
  7. AZOR [ALPRAZOLAM] [Concomitant]
  8. AMITIZA [Concomitant]
     Dosage: 8 ?g, UNK
  9. LANSOPRAZOLE [Concomitant]
     Dosage: 15 mg, UNK
  10. CALCIUM [Concomitant]
     Dosage: 500 tab
  11. FLUTICASONE [Concomitant]
     Dosage: 50 ?g, UNK

REACTIONS (6)
  - Injection site erosion [Unknown]
  - Injection site mass [Unknown]
  - Sinusitis [Unknown]
  - Pyrexia [Unknown]
  - Blood potassium decreased [Unknown]
  - Anaemia [Unknown]
